FAERS Safety Report 23289150 (Version 2)
Quarter: 2023Q4

REPORT INFORMATION
  Report Type: Spontaneous
  Country: US (occurrence: US)
  Receive Date: 20231212
  Receipt Date: 20231226
  Transmission Date: 20240110
  Serious: No
  Sender: FDA-Public Use
  Company Number: US-BAYER-2023A177058

PATIENT
  Age: 56 Year
  Sex: Male

DRUGS (3)
  1. KOVALTRY [Suspect]
     Active Substance: ANTIHEMOPHILIC FACTOR, HUMAN RECOMBINANT
     Indication: Prophylaxis
     Dosage: INFUSE 3500 UNITS (+/-10%)
     Dates: start: 20230412
  2. KOVALTRY [Suspect]
     Active Substance: ANTIHEMOPHILIC FACTOR, HUMAN RECOMBINANT
     Indication: Prophylaxis
     Dosage: INFUSE 3500 UNITS (+/-10%)
     Dates: start: 20230512
  3. KOVALTRY [Suspect]
     Active Substance: ANTIHEMOPHILIC FACTOR, HUMAN RECOMBINANT
     Indication: Prophylaxis
     Dosage: INFUSE 3500 UNITS (+/-10%)
     Dates: start: 20230612

REACTIONS (1)
  - Joint swelling [None]

NARRATIVE: CASE EVENT DATE: 20231204
